FAERS Safety Report 11840335 (Version 1)
Quarter: 2015Q4

REPORT INFORMATION
  Report Type: Spontaneous
  Country: US (occurrence: None)
  Receive Date: 20151215
  Receipt Date: 20151215
  Transmission Date: 20160305
  Serious: No
  Sender: FDA-Public Use
  Company Number: None

PATIENT
  Sex: Female

DRUGS (1)
  1. AMIODARONE [Suspect]
     Active Substance: AMIODARONE

REACTIONS (4)
  - Activities of daily living impaired [None]
  - Mitral valve repair [None]
  - Visual impairment [None]
  - Impaired driving ability [None]

NARRATIVE: CASE EVENT DATE: 2014
